FAERS Safety Report 12409626 (Version 2)
Quarter: 2016Q3

REPORT INFORMATION
  Report Type: Report from Study
  Country: TW (occurrence: TW)
  Receive Date: 20160526
  Receipt Date: 20160713
  Transmission Date: 20161109
  Serious: Yes (Hospitalization, Other)
  Sender: FDA-Public Use
  Company Number: TW-INCYTE CORPORATION-2016IN003064

PATIENT
  Age: 75 Year
  Sex: Female
  Weight: 59 kg

DRUGS (3)
  1. DEXAMETHASONE. [Concomitant]
     Active Substance: DEXAMETHASONE
     Indication: MOUTH ULCERATION
     Dosage: 1 QS
     Route: 061
     Dates: start: 20160510, end: 20160515
  2. JAKAFI [Suspect]
     Active Substance: RUXOLITINIB
     Indication: MYELOFIBROSIS
     Dosage: 20 MG, QD
     Route: 048
     Dates: start: 20140719
  3. SENNOSIDE [Concomitant]
     Active Substance: SENNOSIDES
     Indication: CONSTIPATION
     Dosage: 15 MG, QD
     Route: 048
     Dates: start: 20160512

REACTIONS (12)
  - Renal cyst [Unknown]
  - Urinary tract infection [Recovered/Resolved]
  - Platelet count decreased [Unknown]
  - Renal disorder [Unknown]
  - Kidney enlargement [Unknown]
  - Pruritus [Unknown]
  - Body tinea [Unknown]
  - Rash [Unknown]
  - Leukocytosis [Unknown]
  - Anaemia [Unknown]
  - Sepsis [Unknown]
  - Cough [Unknown]

NARRATIVE: CASE EVENT DATE: 20160506
